FAERS Safety Report 25972577 (Version 1)
Quarter: 2025Q4

REPORT INFORMATION
  Report Type: Spontaneous
  Country: EU (occurrence: EU)
  Receive Date: 20251029
  Receipt Date: 20251029
  Transmission Date: 20260119
  Serious: Yes (Other)
  Sender: ROCHE
  Company Number: None

PATIENT
  Age: 74 Year
  Sex: Female

DRUGS (25)
  1. CELLCEPT [Suspect]
     Active Substance: MYCOPHENOLATE MOFETIL
     Indication: Product used for unknown indication
     Route: 065
  2. SHINGRIX [Suspect]
     Active Substance: RECOMBINANT VARICELLA ZOSTER VIRUS (VZV) GLYCOPROTEIN E
     Indication: Herpes zoster immunisation
     Route: 065
     Dates: start: 20250710
  3. TACROLIMUS [Suspect]
     Active Substance: TACROLIMUS
     Indication: Product used for unknown indication
     Route: 065
  4. PERIO AID [CHLORHEXIDINE GLUCONATE] [Concomitant]
  5. DEXPANTHENOL [Concomitant]
     Active Substance: DEXPANTHENOL
  6. CALCIUM CARBONATE\CHOLECALCIFEROL [Concomitant]
     Active Substance: CALCIUM CARBONATE\CHOLECALCIFEROL
  7. FERROUS SULFATE [Concomitant]
     Active Substance: FERROUS SULFATE
  8. MOXONIDINE [Concomitant]
     Active Substance: MOXONIDINE
  9. DIOSMIN [Concomitant]
     Active Substance: DIOSMIN
  10. BISOPROLOL [Concomitant]
     Active Substance: BISOPROLOL
  11. LERCANIDIPINE HYDROCHLORIDE [Concomitant]
     Active Substance: LERCANIDIPINE HYDROCHLORIDE
  12. EZETIMIBE [Concomitant]
     Active Substance: EZETIMIBE
  13. METHYLPREDNISOLONE [Concomitant]
     Active Substance: METHYLPREDNISOLONE
  14. AZITHROMYCIN [Concomitant]
     Active Substance: AZITHROMYCIN
  15. DAPSONE [Concomitant]
     Active Substance: DAPSONE
  16. MONTELUKAST [Concomitant]
     Active Substance: MONTELUKAST
  17. ACETYLCYSTEINE [Concomitant]
     Active Substance: ACETYLCYSTEINE
  18. ARANESP [Concomitant]
     Active Substance: DARBEPOETIN ALFA
  19. BECLOMETHASONE DIPROPIONATE\FORMOTEROL FUMARATE [Concomitant]
     Active Substance: BECLOMETHASONE DIPROPIONATE\FORMOTEROL FUMARATE
  20. FENOTEROL HYDROBROMIDE [Concomitant]
     Active Substance: FENOTEROL HYDROBROMIDE
  21. SPIRIVA [Concomitant]
     Active Substance: TIOTROPIUM BROMIDE MONOHYDRATE
  22. MOTILIUM [Concomitant]
     Active Substance: DOMPERIDONE
  23. TRAMADOL HYDROCHLORIDE [Concomitant]
     Active Substance: TRAMADOL HYDROCHLORIDE
  24. DAFALGAN [Concomitant]
     Active Substance: ACETAMINOPHEN
  25. MOVICOL [Concomitant]
     Active Substance: POLYETHYLENE GLYCOL 3350\POTASSIUM CHLORIDE\SODIUM BICARBONATE\SODIUM CHLORIDE

REACTIONS (1)
  - Alopecia totalis [Unknown]

NARRATIVE: CASE EVENT DATE: 20250901
